FAERS Safety Report 7009899-6 (Version None)
Quarter: 2010Q3

REPORT INFORMATION
  Report Type: 
  Country: None (occurrence: None)
  Receive Date: 20100923
  Receipt Date: 20100913
  Transmission Date: 20110219
  Serious: Yes (Other)
  Sender: FDA-Public Use
  Company Number: PHHY2010CN46300

PATIENT
  Age: 40 Year
  Sex: Male

DRUGS (5)
  1. SEBIVO [Suspect]
     Dosage: UNK
     Route: 048
     Dates: start: 20090506, end: 20100701
  2. ADEFOVIR DIPIVOXIL KIT [Concomitant]
  3. BARACLUDE [Concomitant]
  4. LAMIVUDINE [Concomitant]
  5. NUCLEOSIDE ANALOGS [Concomitant]

REACTIONS (3)
  - EYELID FUNCTION DISORDER [None]
  - NEUROPATHY PERIPHERAL [None]
  - VIITH NERVE PARALYSIS [None]
